FAERS Safety Report 8439611-5 (Version None)
Quarter: 2012Q2

REPORT INFORMATION
  Report Type: 
  Country: None (occurrence: None)
  Receive Date: 20120323
  Receipt Date: 20110711
  Transmission Date: 20120825
  Serious: Yes (Hospitalization, Other)
  Sender: FDA-Public Use
  Company Number: 163-21880-11053638

PATIENT
  Age: 51 Year
  Sex: Female

DRUGS (17)
  1. FLEXERIL [Concomitant]
  2. AMITRIPTYLINE HCL [Concomitant]
  3. CARAFATE [Concomitant]
  4. NSAIDS (OTHER ANTIINFLAMMATORY AGENTS IN COMB.) (UNKNOWN) [Suspect]
     Indication: PRODUCT USED FOR UNKNOWN INDICATION
  5. PATANOL [Concomitant]
  6. XANAX [Concomitant]
  7. ALBUTEROL [Concomitant]
  8. NASONEX [Concomitant]
  9. LORATADINE [Concomitant]
  10. VELCADE [Concomitant]
  11. REVLIMID [Suspect]
     Indication: MULTIPLE MYELOMA
     Dosage: 15 MG, DAYS 1-14 EVERY 21 DAYS, PO
     Route: 048
     Dates: start: 20110210, end: 20110507
  12. LEVAQUIN [Concomitant]
  13. MORPHINE [Concomitant]
  14. NEXIUM [Concomitant]
  15. VENTOLIN [Concomitant]
  16. DEXAMETHASONE [Concomitant]
  17. CALCIUM AND VITAMIN D (CALCIUM D3) [Concomitant]

REACTIONS (5)
  - OESOPHAGITIS HAEMORRHAGIC [None]
  - FUNGAEMIA [None]
  - UPPER GASTROINTESTINAL HAEMORRHAGE [None]
  - PANCYTOPENIA [None]
  - PNEUMONIA [None]
